FAERS Safety Report 7965496-7 (Version None)
Quarter: 2011Q4

REPORT INFORMATION
  Report Type: 
  Country: None (occurrence: None)
  Receive Date: 20111206
  Receipt Date: 20111206
  Transmission Date: 20120403
  Serious: Yes (Hospitalization)
  Sender: FDA-Public Use
  Company Number: None

PATIENT
  Sex: Male
  Weight: 82.5 kg

DRUGS (6)
  1. CYCLOPHOSPHAMIDE [Suspect]
     Dosage: 1880 MG
  2. ETOPOSIDE [Suspect]
     Dosage: 480 MG
  3. RITUXIMAB (MOAB C2B8 ANTI CD20, CHIMERIC) [Suspect]
     Dosage: 780 MG
  4. VINCRISTINE SULFATE [Suspect]
     Dosage: 2.4 MG
  5. PREDNISONE TAB [Suspect]
     Dosage: 1250 MG
  6. DOXORUBICIN HCL [Suspect]
     Dosage: 96 MG

REACTIONS (3)
  - FALL [None]
  - DYSPNOEA [None]
  - HAEMOGLOBIN DECREASED [None]
